FAERS Safety Report 8915182 (Version 1)
Quarter: 2012Q4

REPORT INFORMATION
  Report Type: 
  Country: AU (occurrence: AU)
  Receive Date: 20121119
  Receipt Date: 20121119
  Transmission Date: 20130627
  Serious: Yes (Hospitalization)
  Sender: FDA-Public Use
  Company Number: AU-ASTRAZENECA-2012SE85258

PATIENT
  Age: 73 Year
  Sex: Female

DRUGS (5)
  1. NEXIUM [Suspect]
     Route: 048
     Dates: end: 20120415
  2. ASPIRIN [Suspect]
     Route: 048
  3. MICARDIS PLUS [Suspect]
     Dosage: 80/12.5, 1 DOSE UNSPECIFIED
     Route: 048
     Dates: end: 20120415
  4. NATRILIX [Suspect]
     Indication: ESSENTIAL HYPERTENSION
     Route: 048
     Dates: end: 20120415
  5. VENTOLIN [Suspect]
     Dosage: 100 MICROGRAM INHALATION
     Route: 048
     Dates: end: 20120415

REACTIONS (4)
  - Blood creatine phosphokinase increased [Not Recovered/Not Resolved]
  - Mucosal inflammation [Not Recovered/Not Resolved]
  - Necrosis [Not Recovered/Not Resolved]
  - Rhabdomyolysis [Not Recovered/Not Resolved]
